FAERS Safety Report 21782102 (Version 1)
Quarter: 2022Q4

REPORT INFORMATION
  Report Type: Spontaneous
  Country: CO (occurrence: CO)
  Receive Date: 20221227
  Receipt Date: 20221227
  Transmission Date: 20230113
  Serious: Yes (Other)
  Sender: FDA-Public Use
  Company Number: CO-PFIZER INC-PV202200127360

PATIENT
  Age: 38 Year
  Sex: Female

DRUGS (1)
  1. ENBREL [Suspect]
     Active Substance: ETANERCEPT
     Indication: Rheumatoid arthritis
     Dosage: 50 MG, EVERY 8 DAYS
     Route: 058
     Dates: start: 2020, end: 202211

REACTIONS (9)
  - Joint effusion [Unknown]
  - Arthritis [Unknown]
  - Inflammation [Unknown]
  - Gait inability [Unknown]
  - Peripheral swelling [Unknown]
  - Skin discolouration [Unknown]
  - Arthralgia [Unknown]
  - Neck pain [Unknown]
  - Toothache [Unknown]

NARRATIVE: CASE EVENT DATE: 20221206
